FAERS Safety Report 10911392 (Version 1)
Quarter: 2015Q1

REPORT INFORMATION
  Report Type: Spontaneous
  Country: GB (occurrence: GB)
  Receive Date: 20150313
  Receipt Date: 20150313
  Transmission Date: 20150721
  Serious: Yes (Other)
  Sender: FDA-Public Use
  Company Number: GB-ACCORD-029230

PATIENT
  Age: 37 Year
  Sex: Male
  Weight: 71 kg

DRUGS (17)
  1. MIRTAZAPINE. [Concomitant]
     Active Substance: MIRTAZAPINE
     Dates: start: 20150125
  2. SERTRALINE [Concomitant]
     Active Substance: SERTRALINE HYDROCHLORIDE
     Dates: start: 20140606
  3. PROPRANOLOL [Concomitant]
     Active Substance: PROPRANOLOL\PROPRANOLOL HYDROCHLORIDE
     Dates: start: 20140606
  4. MENTHA X PIPERITA [Concomitant]
     Dates: start: 20141230
  5. FLUTICASONE [Concomitant]
     Active Substance: FLUTICASONE\FLUTICASONE PROPIONATE
     Dates: start: 20131220, end: 20150125
  6. DIETHANOLAMINE FUSIDATE/FUSIDATE SODIUM/FUSIDIC ACID [Concomitant]
     Dates: start: 20150114, end: 20150121
  7. HIBISCRUB [Concomitant]
     Dosage: USE AS DIRECTED
     Dates: start: 20141203, end: 20150222
  8. SALIVIX [Concomitant]
     Dosage: USE AS DIRECTED
     Dates: start: 20141127
  9. ACIDEX [Concomitant]
     Dates: start: 20141223, end: 20150104
  10. PROMETHAZINE [Concomitant]
     Active Substance: PROMETHAZINE\PROMETHAZINE HYDROCHLORIDE
     Dosage: 1-2 AT NIGHT
     Dates: start: 20141022
  11. DIAZEPAM. [Concomitant]
     Active Substance: DIAZEPAM
     Dates: start: 20141126, end: 20150224
  12. OMEPRAZOLE. [Concomitant]
     Active Substance: OMEPRAZOLE
     Dates: start: 20140606
  13. FLUCLOXACILLIN [Concomitant]
     Active Substance: FLUCLOXACILLIN
     Dates: start: 20141126, end: 20141203
  14. TRIMETHOPRIM/TRIMETHOPRIM LACTATE/TRIMETHOPRIM SULFATE [Concomitant]
     Dates: start: 20141203, end: 20150113
  15. AMITRIPTYLINE [Suspect]
     Active Substance: AMITRIPTYLINE
     Indication: PRODUCT USED FOR UNKNOWN INDICATION
     Dosage: TIME TO ONSET FROM FIRST DOSE - 13011 DAY.
     Dates: start: 19790712
  16. LYMECYCLINE [Concomitant]
     Active Substance: LYMECYCLINE
     Dates: start: 20141209
  17. NAPROXEN. [Concomitant]
     Active Substance: NAPROXEN
     Dosage: DAILY WITH FOOD
     Dates: start: 20150131, end: 20150214

REACTIONS (1)
  - Drug reaction with eosinophilia and systemic symptoms [Unknown]

NARRATIVE: CASE EVENT DATE: 20150224
